FAERS Safety Report 23671446 (Version 1)
Quarter: 2024Q1

REPORT INFORMATION
  Report Type: Spontaneous
  Country: US (occurrence: US)
  Receive Date: 20240326
  Receipt Date: 20240326
  Transmission Date: 20240409
  Serious: No
  Sender: FDA-Public Use
  Company Number: US-TEVA-VS-3138487

PATIENT
  Age: 75 Year
  Sex: Female

DRUGS (4)
  1. FLUTICASONE PROPIONATE AND SALMETEROL [Suspect]
     Active Substance: FLUTICASONE PROPIONATE\SALMETEROL XINAFOATE
     Indication: Bronchiectasis
     Dosage: 232 MCG / 14 MCG
     Route: 055
  2. FLUTICASONE PROPIONATE AND SALMETEROL [Suspect]
     Active Substance: FLUTICASONE PROPIONATE\SALMETEROL XINAFOATE
     Dosage: 232 MCG / 14 MCG
     Route: 055
  3. FLUTICASONE PROPIONATE AND SALMETEROL [Suspect]
     Active Substance: FLUTICASONE PROPIONATE\SALMETEROL XINAFOATE
     Dosage: 232 MCG / 14 MCG
     Route: 055
  4. FLUTICASONE PROPIONATE AND SALMETEROL [Suspect]
     Active Substance: FLUTICASONE PROPIONATE\SALMETEROL XINAFOATE

REACTIONS (6)
  - Wrong technique in device usage process [Unknown]
  - Off label use [Unknown]
  - Device delivery system issue [Unknown]
  - Extra dose administered [Unknown]
  - Product odour abnormal [Unknown]
  - Off label use [Unknown]
